FAERS Safety Report 16319495 (Version 1)
Quarter: 2019Q2

REPORT INFORMATION
  Report Type: Spontaneous
  Country: US (occurrence: US)
  Receive Date: 20190410
  Receipt Date: 20190410
  Transmission Date: 20190711
  Serious: No
  Sender: FDA-Public Use
  Company Number: None

PATIENT
  Age: 12 Year
  Sex: Female
  Weight: 39.01 kg

DRUGS (3)
  1. STELARA [Suspect]
     Active Substance: USTEKINUMAB
     Indication: PALMOPLANTAR PUSTULOSIS
  2. STELARA [Suspect]
     Active Substance: USTEKINUMAB
     Indication: CROHN^S DISEASE
     Dosage: ?          OTHER FREQUENCY:EVERY 2 MONTHS;?
     Route: 058
     Dates: start: 201806
  3. STELARA [Suspect]
     Active Substance: USTEKINUMAB
     Indication: OSTEOPOROSIS

REACTIONS (1)
  - Nephrolithiasis [None]
